FAERS Safety Report 5647044-X (Version None)
Quarter: 2008Q1

REPORT INFORMATION
  Report Type: 
  Country: None (occurrence: None)
  Receive Date: 20080228
  Receipt Date: 20080228
  Transmission Date: 20080703
  Serious: Yes (Other)
  Sender: FDA-Public Use
  Company Number: None

PATIENT
  Age: 42 Year
  Sex: Male
  Weight: 99.7913 kg

DRUGS (2)
  1. SERTRALINE HCL [Suspect]
     Indication: ANXIETY
     Dosage: 150 MG DAILY PO
     Route: 048
     Dates: start: 20070701, end: 20080228
  2. SERTRALINE HCL [Suspect]
     Indication: MAJOR DEPRESSION
     Dosage: 150 MG DAILY PO
     Route: 048
     Dates: start: 20070701, end: 20080228

REACTIONS (6)
  - ANXIETY [None]
  - DISEASE RECURRENCE [None]
  - DRUG INEFFECTIVE [None]
  - MAJOR DEPRESSION [None]
  - PANIC ATTACK [None]
  - THERAPEUTIC RESPONSE UNEXPECTED WITH DRUG SUBSTITUTION [None]
